FAERS Safety Report 6231690-9 (Version None)
Quarter: 2009Q2

REPORT INFORMATION
  Report Type: 
  Country: None (occurrence: None)
  Receive Date: 20090616
  Receipt Date: 20090601
  Transmission Date: 20091009
  Serious: Yes (Death, Other)
  Sender: FDA-Public Use
  Company Number: JP-GENENTECH-284701

PATIENT

DRUGS (8)
  1. RITUXIMAB [Suspect]
     Indication: B-CELL LYMPHOMA
     Dosage: UNK
     Route: 065
  2. ETOPOSIDE [Suspect]
     Indication: B-CELL LYMPHOMA
     Route: 065
  3. MITOXANTRONE [Suspect]
     Indication: B-CELL LYMPHOMA
     Route: 065
  4. CYCLOPHOSPHAMIDE [Suspect]
     Indication: B-CELL LYMPHOMA
     Route: 065
  5. VINCRISTINE [Suspect]
     Indication: B-CELL LYMPHOMA
     Route: 065
  6. PREDNISOLONE [Suspect]
     Indication: B-CELL LYMPHOMA
     Route: 065
  7. BLEOMYCIN SULFATE [Suspect]
     Indication: B-CELL LYMPHOMA
     Route: 065
  8. NEUPOGEN [Concomitant]
     Indication: DRUG USE FOR UNKNOWN INDICATION

REACTIONS (6)
  - FEBRILE NEUTROPENIA [None]
  - HEPATITIS [None]
  - INTESTINAL PERFORATION [None]
  - NEOPLASM MALIGNANT [None]
  - NEUTROPENIA [None]
  - THROMBOCYTOPENIA [None]
